FAERS Safety Report 10229922 (Version 1)
Quarter: 2014Q2

REPORT INFORMATION
  Report Type: Spontaneous
  Country: US (occurrence: None)
  Receive Date: 20140506
  Receipt Date: 20140506
  Transmission Date: 20141212
  Serious: Yes (Life-Threatening, Hospitalization)
  Sender: FDA-Public Use
  Company Number: 1200756

PATIENT
  Age: 62 Year
  Sex: Male

DRUGS (10)
  1. AVASTIN [Suspect]
     Indication: LUNG NEOPLASM MALIGNANT
  2. TAXOL (PACLITAXEL) [Suspect]
     Indication: LUNG NEOPLASM MALIGNANT
  3. CARBOPLATIN (CARBOPLATIN) [Suspect]
     Indication: LUNG NEOPLASM MALIGNANT
  4. IBUPROFEN (IBUPROFEN) [Concomitant]
  5. PROCHLORPERAZINE (PROCHLORPERAZINE) [Concomitant]
  6. LORAZEPAM (LORAZEPAM) [Concomitant]
  7. MORPHINE (MORPHINE) [Concomitant]
  8. DEXAMETHASONE (DEXAMETHASONE) [Concomitant]
  9. OMEPRAZOLE (OMEPRAZOLE) [Concomitant]
  10. PERCOCET (OXYCODONE HYDROCHLORIDE, PARACETAMOL) [Concomitant]

REACTIONS (1)
  - Intestinal perforation [None]
